FAERS Safety Report 5068189-1 (Version None)
Quarter: 2006Q3

REPORT INFORMATION
  Report Type: 
  Country: None (occurrence: None)
  Receive Date: 20060802
  Receipt Date: 20040813
  Transmission Date: 20061208
  Serious: No
  Sender: FDA-Public Use
  Company Number: US-BRISTOL-MYERS SQUIBB COMPANY-12672655

PATIENT
  Age: 85 Year
  Sex: Female
  Weight: 48 kg

DRUGS (5)
  1. COUMADIN [Suspect]
     Indication: ATRIAL FIBRILLATION
     Dosage: INITIAL DOSE 1 MG DAILY FOR 4 DAYS, THEN 2 MG FOR 3 DAYS DOSE CHANGE TO 2 MG DAILY
     Route: 048
     Dates: start: 20040706
  2. ACETAMINOPHEN [Concomitant]
  3. MULTI-VITAMIN [Concomitant]
  4. TIMOLOL MALEATE [Concomitant]
     Indication: GLAUCOMA
     Route: 047
  5. GLUCOSAMINE [Concomitant]

REACTIONS (4)
  - ASTHENIA [None]
  - FATIGUE [None]
  - HYPERSENSITIVITY [None]
  - MYALGIA [None]
